FAERS Safety Report 19364475 (Version 2)
Quarter: 2021Q2

REPORT INFORMATION
  Report Type: Spontaneous
  Country: SK (occurrence: SK)
  Receive Date: 20210603
  Receipt Date: 20210607
  Transmission Date: 20210717
  Serious: Yes (Other)
  Sender: FDA-Public Use
  Company Number: SK-ROCHE-2837839

PATIENT
  Sex: Female
  Weight: 100 kg

DRUGS (3)
  1. CHLORAMBUCIL [Concomitant]
     Active Substance: CHLORAMBUCIL
     Route: 065
     Dates: start: 20210409
  2. MILURIT [Concomitant]
     Active Substance: ALLOPURINOL
  3. GAZYVARO [Suspect]
     Active Substance: OBINUTUZUMAB
     Indication: CHRONIC LYMPHOCYTIC LEUKAEMIA
     Route: 042

REACTIONS (3)
  - Tremor [Not Recovered/Not Resolved]
  - Bradycardia [Unknown]
  - Hypotension [Unknown]
